FAERS Safety Report 18971103 (Version 2)
Quarter: 2022Q1

REPORT INFORMATION
  Report Type: Spontaneous
  Country: US (occurrence: US)
  Receive Date: 20210305
  Receipt Date: 20220131
  Transmission Date: 20220423
  Serious: Yes (Hospitalization, Other)
  Sender: FDA-Public Use
  Company Number: US-LUPIN PHARMACEUTICALS INC.-2021-02791

PATIENT
  Age: 22 Year
  Sex: Male

DRUGS (1)
  1. ZOLPIDEM [Suspect]
     Active Substance: ZOLPIDEM TARTRATE
     Indication: Product used for unknown indication
     Dosage: 60 DOSAGE FORM, QD, SIXTY 10 MG TABLETS
     Route: 065

REACTIONS (3)
  - Overdose [Unknown]
  - Drug abuse [Unknown]
  - Drug withdrawal convulsions [Recovered/Resolved]
